FAERS Safety Report 6654173-0 (Version None)
Quarter: 2010Q1

REPORT INFORMATION
  Report Type: 
  Country: None (occurrence: None)
  Receive Date: 20100326
  Receipt Date: 20100316
  Transmission Date: 20100710
  Serious: Yes (Hospitalization)
  Sender: FDA-Public Use
  Company Number: CH-WYE-H14205210

PATIENT
  Age: 74 Year
  Sex: Female

DRUGS (5)
  1. TEMESTA [Suspect]
  2. PANTOPRAZOLE SODIUM [Suspect]
  3. DETRUSITOL [Suspect]
     Dosage: ONCE DAILY
  4. ELTROXIN [Concomitant]
  5. PLENDIL [Concomitant]
     Indication: HYPERTENSION

REACTIONS (3)
  - BLADDER TAMPONADE [None]
  - HAEMATURIA [None]
  - PLATELET DISORDER [None]
